FAERS Safety Report 4996138-0 (Version None)
Quarter: 2006Q2

REPORT INFORMATION
  Report Type: 
  Country: None (occurrence: None)
  Receive Date: 20060504
  Receipt Date: 20060421
  Transmission Date: 20061013
  Serious: Yes (Death, Other)
  Sender: FDA-Public Use
  Company Number: USA-2006-0023825

PATIENT
  Age: 45 Year
  Sex: Female
  Weight: 80 kg

DRUGS (21)
  1. OXYCONTIN [Suspect]
     Indication: PAIN
     Dosage: 80 MG, TID, UNK
     Route: 065
  2. NICOTINE [Suspect]
     Dosage: UNK
     Route: 065
  3. CAFFEINE (CAFFEINE) [Suspect]
     Dosage: UNK
     Route: 065
  4. FLUOXETINE [Suspect]
  5. DIPHENHYDRAMINE HCL [Suspect]
     Dosage: UNK
     Route: 065
  6. METHORPHAN [Suspect]
     Dosage: UNK
     Route: 065
  7. NORTRIPTYLINE (NORTRIPTYLINE) [Suspect]
     Dosage: UNK
     Route: 065
  8. QUINIDINE (QUINIDINE) [Suspect]
     Dosage: UNK
     Route: 065
  9. SOLU-MEDROL [Concomitant]
  10. FLUOXETINE [Concomitant]
  11. ZOLPIDEM TARTRATE [Concomitant]
  12. NAPROXEN [Concomitant]
  13. HYDROCODONE [Concomitant]
  14. CLARITHROMYCIN [Concomitant]
  15. NORTRIPTYLINE (NORTRIPTYLINE) [Concomitant]
  16. PROPOXYPHENE HCL AND ACETAMINOPHEN [Concomitant]
  17. LIORESAL [Concomitant]
  18. INTERFERON BETA-1A (INTERFERON BETA) [Concomitant]
  19. DOXAZOSIN MESYLATE [Concomitant]
  20. ACETAMINOPHEN AND HYDROCODONE BITARTRATE [Concomitant]
  21. QUINIDINE (QUINIDINE) [Concomitant]

REACTIONS (5)
  - BRONCHITIS [None]
  - COMPLETED SUICIDE [None]
  - DEPRESSION [None]
  - INTENTIONAL OVERDOSE [None]
  - PNEUMONIA [None]
